FAERS Safety Report 5017036-2 (Version None)
Quarter: 2006Q2

REPORT INFORMATION
  Report Type: 
  Country: None (occurrence: None)
  Receive Date: 20060526
  Receipt Date: 20060515
  Transmission Date: 20061013
  Serious: Yes (Hospitalization)
  Sender: FDA-Public Use
  Company Number: 225083

PATIENT
  Age: 27 Year
  Sex: Male
  Weight: 70 kg

DRUGS (1)
  1. RITUXAN [Suspect]
     Indication: THROMBOCYTOPENIC PURPURA
     Dosage: 390 MG INTRAVENOUS
     Route: 042
     Dates: start: 20060509, end: 20060509

REACTIONS (5)
  - BLOOD ELECTROLYTES ABNORMAL [None]
  - BLOOD SODIUM DECREASED [None]
  - CONVULSION [None]
  - DYSPNOEA [None]
  - MALAISE [None]
